FAERS Safety Report 5431277-1 (Version None)
Quarter: 2007Q3

REPORT INFORMATION
  Report Type: 
  Country: None (occurrence: None)
  Receive Date: 20070830
  Receipt Date: 20070823
  Transmission Date: 20080115
  Serious: Yes (Other)
  Sender: FDA-Public Use
  Company Number: GB-ALLERGAN-0709444US

PATIENT
  Age: 60 Year
  Sex: Female
  Weight: 79 kg

DRUGS (4)
  1. COMBIGAN [Suspect]
     Indication: INTRAOCULAR PRESSURE INCREASED
     Dosage: UNK, BID
     Route: 047
     Dates: start: 20070629, end: 20070717
  2. BECLOMETHASONE DIPROPIONATE [Concomitant]
     Indication: ASTHMA
     Dosage: 100 UG, BID
     Route: 055
     Dates: start: 20070101
  3. BIMATOPROST UNK [Concomitant]
     Indication: GLAUCOMA
     Dosage: 0.3 MG, QD
     Route: 047
     Dates: start: 20060101
  4. PILOCARPINE [Concomitant]
     Indication: INTRAOCULAR PRESSURE INCREASED
     Dosage: UNK, QID
     Route: 047
     Dates: start: 19960101

REACTIONS (5)
  - DYSPNOEA [None]
  - OCULAR HYPERAEMIA [None]
  - PAIN [None]
  - SECRETION DISCHARGE [None]
  - SKIN EXFOLIATION [None]
